FAERS Safety Report 9775472 (Version 2)
Quarter: 2014Q1

REPORT INFORMATION
  Report Type: Spontaneous
  Country: US (occurrence: US)
  Receive Date: 20131220
  Receipt Date: 20140318
  Transmission Date: 20141002
  Serious: No
  Sender: FDA-Public Use
  Company Number: US-GALDERMA-US13003492

PATIENT
  Age: 32 Year
  Sex: Male

DRUGS (8)
  1. MIRVASO (BRIMONIDINE) TOPICAL GEL, 0.33% [Suspect]
     Indication: ROSACEA
     Dosage: 0.33%
     Route: 061
     Dates: start: 20131105, end: 20131106
  2. EPIDUO (ADAPALENE, BENZOYL PEROXIDE) GEL 0.1% / 2.5% [Concomitant]
     Indication: ACNE
     Route: 061
     Dates: start: 2011
  3. DOXYCYCLINE [Concomitant]
     Indication: ACNE
     Dosage: 100 MG
     Route: 048
     Dates: start: 201202
  4. DOXYCYCLINE [Concomitant]
     Indication: ROSACEA
  5. SODIUM SULFACETAMIDE [Concomitant]
     Indication: ROSACEA
     Route: 061
  6. TOPIX ULTRA LITE MOISTURE DEW CREAM [Concomitant]
     Indication: DRY SKIN PROPHYLAXIS
     Route: 061
  7. AVEENO ULTRA SENSITIVE FOAM WASH [Concomitant]
     Indication: THERAPEUTIC SKIN CARE TOPICAL
     Route: 061
     Dates: start: 201307
  8. AVEENO ULTRA SENSITIVE FOAM WASH [Concomitant]
     Indication: ROSACEA

REACTIONS (5)
  - Pallor [Recovered/Resolved]
  - Condition aggravated [Recovered/Resolved]
  - Erythema [Recovered/Resolved]
  - Rash macular [Recovered/Resolved]
  - Off label use [Recovered/Resolved]
